FAERS Safety Report 7091632-3 (Version None)
Quarter: 2010Q4

REPORT INFORMATION
  Report Type: 
  Country: None (occurrence: None)
  Receive Date: 20101101
  Receipt Date: 20101018
  Transmission Date: 20110411
  Serious: Yes (Hospitalization)
  Sender: FDA-Public Use
  Company Number: APP201000864

PATIENT
  Age: 85 Year
  Sex: Female
  Weight: 68 kg

DRUGS (6)
  1. HEPARIN SODIUM INJECTION [Suspect]
     Indication: COAGULOPATHY
     Dosage: INTRAVENOUS
     Route: 042
  2. HEPARIN SODIUM INJECTION [Suspect]
     Indication: PRODUCT USED FOR UNKNOWN INDICATION
     Dosage: INTRAVENOUS
     Route: 042
  3. ASPIRIN [Concomitant]
  4. CLOPIDOGREL [Concomitant]
  5. ROSUVASTATIN [Concomitant]
  6. METOPROLOL SUCCINATE [Concomitant]

REACTIONS (11)
  - ACUTE MYOCARDIAL INFARCTION [None]
  - ASPARTATE AMINOTRANSFERASE INCREASED [None]
  - BLOOD ALBUMIN DECREASED [None]
  - BLOOD BILIRUBIN INCREASED [None]
  - BLOOD BILIRUBIN UNCONJUGATED INCREASED [None]
  - CARDIORENAL SYNDROME [None]
  - HAEMODIALYSIS [None]
  - HAEMORRHAGE [None]
  - HEPARIN-INDUCED THROMBOCYTOPENIA [None]
  - LIVER DISORDER [None]
  - RENAL FAILURE [None]
